FAERS Safety Report 16947459 (Version 2)
Quarter: 2019Q4

REPORT INFORMATION
  Report Type: Report from Study
  Country: GB (occurrence: GB)
  Receive Date: 20191022
  Receipt Date: 20191218
  Transmission Date: 20200122
  Serious: Yes (Other)
  Sender: FDA-Public Use
  Company Number: PHHY2019GB215607

PATIENT
  Sex: Female

DRUGS (1)
  1. HYRIMOZ [Suspect]
     Active Substance: ADALIMUMAB-ADAZ
     Indication: PRODUCT USED FOR UNKNOWN INDICATION
     Dosage: UNK, Q2W
     Route: 065

REACTIONS (3)
  - Pain [Unknown]
  - Upper limb fracture [Unknown]
  - Injection site pain [Unknown]
